FAERS Safety Report 9122474 (Version 1)
Quarter: 2013Q1

REPORT INFORMATION
  Report Type: Spontaneous
  Country: US (occurrence: None)
  Receive Date: 20130221
  Receipt Date: 20130221
  Transmission Date: 20140127
  Serious: Yes (Hospitalization)
  Sender: FDA-Public Use
  Company Number: None

PATIENT
  Sex: Female

DRUGS (1)
  1. ENBREL PFS 50 MG PFIZER [Suspect]
     Indication: RHEUMATOID ARTHRITIS
     Dosage: ONCE A WEEK?N/A TO PRESENT
     Route: 058

REACTIONS (2)
  - Pneumonia [None]
  - Cardiac failure congestive [None]
